FAERS Safety Report 9203137 (Version 1)
Quarter: 2013Q1

REPORT INFORMATION
  Report Type: Spontaneous
  Country: NO (occurrence: None)
  Receive Date: 20130328
  Receipt Date: 20130328
  Transmission Date: 20140127
  Serious: Yes (Hospitalization, Other)
  Sender: FDA-Public Use
  Company Number: 2013-05253

PATIENT
  Age: 45 Year
  Sex: Female

DRUGS (4)
  1. RAMIPRIL [Suspect]
     Indication: HYPERTENSION
     Route: 048
     Dates: start: 201102
  2. METFORMIN HYDROCHLORIDE [Suspect]
     Indication: TYPE 2 DIABETES MELLITUS
     Route: 048
     Dates: start: 201103, end: 20110606
  3. IMIGRAN [Suspect]
     Indication: MIGRAINE
     Route: 048
     Dates: end: 20110624
  4. INSULATARD [Suspect]
     Indication: TYPE 2 DIABETES MELLITUS
     Dates: start: 2011

REACTIONS (4)
  - Abortion spontaneous [None]
  - Pregnancy [None]
  - Maternal exposure during pregnancy [None]
  - Vaginal haemorrhage [None]
